FAERS Safety Report 5859162-1 (Version None)
Quarter: 2008Q3

REPORT INFORMATION
  Report Type: 
  Country: None (occurrence: None)
  Receive Date: 20080825
  Receipt Date: 20080814
  Transmission Date: 20090109
  Serious: Yes (Hospitalization)
  Sender: FDA-Public Use
  Company Number: 2008AL009661

PATIENT
  Age: 85 Year
  Sex: Female

DRUGS (9)
  1. GABAPENTIN [Suspect]
     Indication: PAIN
     Dosage: 1500 MG; QD; PO
     Route: 048
     Dates: start: 20080708, end: 20080714
  2. METFORMIN HYDROCHLORIDE EXTENDED-RELEASE TABLETS, 500 MG (PUREPAC) MET [Suspect]
     Indication: DIABETES MELLITUS
     Dosage: 500 MG; QD; PO
     Route: 048
     Dates: start: 20080716
  3. COZAAR [Concomitant]
  4. DURAGESIC-100 [Concomitant]
  5. WARFARIN SODIUM [Concomitant]
  6. PREDNISOLONE [Concomitant]
  7. HERACILLIN [Concomitant]
  8. SOTALOL HCL [Concomitant]
  9. TRADOLAN [Concomitant]

REACTIONS (12)
  - BLOOD GLUCOSE DECREASED [None]
  - BLOOD POTASSIUM ABNORMAL [None]
  - BLOOD PRESSURE SYSTOLIC DECREASED [None]
  - BLOOD SODIUM DECREASED [None]
  - FATIGUE [None]
  - HEART RATE INCREASED [None]
  - INTERNATIONAL NORMALISED RATIO INCREASED [None]
  - LACTIC ACIDOSIS [None]
  - LEG AMPUTATION [None]
  - LOSS OF CONSCIOUSNESS [None]
  - RENAL IMPAIRMENT [None]
  - STAPHYLOCOCCAL SEPSIS [None]
